FAERS Safety Report 15334350 (Version 1)
Quarter: 2018Q3

REPORT INFORMATION
  Report Type: Spontaneous
  Country: US (occurrence: US)
  Receive Date: 20180827
  Receipt Date: 20180827
  Transmission Date: 20181010
  Serious: Yes (Hospitalization)
  Sender: FDA-Public Use
  Company Number: None

PATIENT
  Age: 17 Year
  Sex: Male
  Weight: 66.6 kg

DRUGS (5)
  1. METHOTREXATE. [Suspect]
     Active Substance: METHOTREXATE
     Dates: end: 20180716
  2. CYTARABINE. [Suspect]
     Active Substance: CYTARABINE
     Dates: end: 20180530
  3. PREDNISONE. [Suspect]
     Active Substance: PREDNISONE
     Dates: end: 20180628
  4. DAUNORUBICIN [Suspect]
     Active Substance: DAUNORUBICIN
     Dates: end: 20180622
  5. VINCRISTINE SULFATE. [Suspect]
     Active Substance: VINCRISTINE SULFATE
     Dates: end: 20180622

REACTIONS (16)
  - Septic shock [None]
  - Mental status changes [None]
  - Toxicity to various agents [None]
  - Neutropenia [None]
  - Hyperbilirubinaemia [None]
  - Hyponatraemia [None]
  - Hypoxia [None]
  - Thrombocytopenia [None]
  - Slow response to stimuli [None]
  - Electroencephalogram abnormal [None]
  - Respiratory failure [None]
  - Fungal infection [None]
  - Cerebral disorder [None]
  - Nervous system disorder [None]
  - Pyrexia [None]
  - Osmotic demyelination syndrome [None]

NARRATIVE: CASE EVENT DATE: 20180723
